FAERS Safety Report 5338547-6 (Version None)
Quarter: 2007Q2

REPORT INFORMATION
  Report Type: 
  Country: None (occurrence: None)
  Receive Date: 20070530
  Receipt Date: 20070521
  Transmission Date: 20071010
  Serious: Yes (Hospitalization)
  Sender: FDA-Public Use
  Company Number: FR-AVENTIS-200711750FR

PATIENT
  Age: 26 Year
  Sex: Female

DRUGS (1)
  1. CLOMID [Suspect]
     Indication: OVULATION INDUCTION
     Route: 048

REACTIONS (1)
  - MYDRIASIS [None]
